FAERS Safety Report 25676127 (Version 1)
Quarter: 2025Q3

REPORT INFORMATION
  Report Type: Report from Study
  Country: US (occurrence: US)
  Receive Date: 20250813
  Receipt Date: 20250813
  Transmission Date: 20251021
  Serious: Yes (Other)
  Sender: ALEXION PHARMACEUTICALS
  Company Number: US-AstraZeneca-CH-00928791A

PATIENT
  Age: 57 Year
  Sex: Female

DRUGS (1)
  1. ULTOMIRIS [Suspect]
     Active Substance: RAVULIZUMAB-CWVZ
     Indication: Myasthenia gravis

REACTIONS (7)
  - Blindness transient [Unknown]
  - Memory impairment [Unknown]
  - Ocular discomfort [Unknown]
  - Back pain [Recovered/Resolved]
  - Eye pain [Unknown]
  - Muscle disorder [Unknown]
  - Impaired driving ability [Unknown]

NARRATIVE: CASE EVENT DATE: 20250620
